FAERS Safety Report 4352660-1 (Version None)
Quarter: 2004Q2

REPORT INFORMATION
  Report Type: 
  Country: None (occurrence: None)
  Receive Date: 20040429
  Receipt Date: 20040415
  Transmission Date: 20050107
  Serious: Yes (Other)
  Sender: FDA-Public Use
  Company Number: 2003-DE-05645YA

PATIENT
  Age: 73 Year
  Sex: Male

DRUGS (6)
  1. FLOMAX [Suspect]
     Indication: ILL-DEFINED DISORDER
     Dosage: 0.4 MG
     Route: 048
  2. LIPITOR [Suspect]
     Indication: ILL-DEFINED DISORDER
     Dosage: 20 MG
     Route: 048
     Dates: start: 19970801
  3. LISINOPRIL [Suspect]
     Indication: HYPERTENSION
     Dosage: 30 MG
     Route: 048
  4. GLYBURIDE [Suspect]
     Indication: DIABETES MELLITUS NON-INSULIN-DEPENDENT
     Dosage: 5 MG, 2.5 MG BID
     Route: 048
  5. RIVASTIGMINE (RIVASTIGMINE) [Concomitant]
  6. CYCLOBENZAPRINE HCL [Concomitant]

REACTIONS (1)
  - PROSTATE CANCER [None]
